FAERS Safety Report 5537892-9 (Version None)
Quarter: 2007Q4

REPORT INFORMATION
  Report Type: 
  Country: None (occurrence: None)
  Receive Date: 20071207
  Receipt Date: 20071128
  Transmission Date: 20080405
  Serious: Yes (Death, Hospitalization, Other)
  Sender: FDA-Public Use
  Company Number: DE-PFIZER INC-2007087768

PATIENT
  Sex: Female
  Weight: 57 kg

DRUGS (2)
  1. ZIPRASIDONE HCL [Suspect]
     Indication: SCHIZOPHRENIA
     Route: 048
  2. ZIPRASIDONE HCL [Suspect]
     Indication: SCHIZOAFFECTIVE DISORDER

REACTIONS (3)
  - BUNDLE BRANCH BLOCK RIGHT [None]
  - DEATH [None]
  - HALLUCINATION, AUDITORY [None]
